FAERS Safety Report 9028567 (Version 1)
Quarter: 2013Q1

REPORT INFORMATION
  Report Type: Spontaneous
  Country: MX (occurrence: MX)
  Receive Date: 20130124
  Receipt Date: 20130124
  Transmission Date: 20140127
  Serious: Yes (Death)
  Sender: FDA-Public Use
  Company Number: MX-GLAXOSMITHKLINE-A1009384A

PATIENT
  Sex: Female

DRUGS (5)
  1. AVANDAMET [Suspect]
     Indication: PRODUCT USED FOR UNKNOWN INDICATION
     Route: 048
  2. COAPROVEL [Concomitant]
  3. IMDUR [Concomitant]
  4. LASIX [Concomitant]
  5. VERAPAMILO [Concomitant]

REACTIONS (1)
  - Cerebrovascular accident [Fatal]
